FAERS Safety Report 10205486 (Version 3)
Quarter: 2014Q4

REPORT INFORMATION
  Report Type: Spontaneous
  Country: JP (occurrence: JP)
  Receive Date: 20140529
  Receipt Date: 20141205
  Transmission Date: 20150528
  Serious: Yes (Death)
  Sender: FDA-Public Use
  Company Number: JP-BRACCO-008127

PATIENT
  Age: 65 Year
  Sex: Male
  Weight: 58 kg

DRUGS (15)
  1. ALL OTHER THERAPEUTIC PRODUCTS [Concomitant]
     Active Substance: UNSPECIFIED INGREDIENT
     Dates: start: 20121121
  2. PREDONINE [Concomitant]
     Active Substance: PREDNISOLONE\PREDNISOLONE ACETATE\PREDNISOLONE SODIUM SUCCINATE
     Dates: start: 20120629
  3. THYRADIN S [Concomitant]
     Active Substance: LEVOTHYROXINE SODIUM
     Dates: start: 20121212
  4. URSO [Concomitant]
     Active Substance: URSODIOL
     Dates: start: 20130322
  5. JANUVIA [Concomitant]
     Active Substance: SITAGLIPTIN PHOSPHATE
     Dates: start: 20120830
  6. IOPAMIDOL [Suspect]
     Active Substance: IOPAMIDOL
     Indication: COMPUTERISED TOMOGRAM
     Route: 042
     Dates: start: 20140514, end: 20140514
  7. ARTIST [Concomitant]
     Active Substance: CARVEDILOL
     Dates: start: 20120827
  8. SOTACOR [Concomitant]
     Active Substance: SOTALOL HYDROCHLORIDE
     Dates: start: 20121006, end: 201405
  9. LENDORMIN [Concomitant]
     Active Substance: BROTIZOLAM
     Dates: start: 20120629
  10. GLUFAST [Concomitant]
     Active Substance: MITIGLINIDE
     Dates: start: 20140110
  11. COUMADIN [Concomitant]
     Active Substance: WARFARIN SODIUM
     Dates: start: 20120717
  12. EPADEL [Concomitant]
     Active Substance: ICOSAPENT
     Dates: start: 20130306
  13. TAKEPRON [Concomitant]
     Active Substance: LANSOPRAZOLE
     Dates: start: 20120629
  14. MEXITIL [Concomitant]
     Active Substance: MEXILETINE HYDROCHLORIDE
     Dates: start: 20120817
  15. METFORMIN HYDROCHLORIDE. [Concomitant]
     Active Substance: METFORMIN HYDROCHLORIDE
     Dates: start: 20120823

REACTIONS (2)
  - Cardiac arrest [Fatal]
  - Shock [Fatal]

NARRATIVE: CASE EVENT DATE: 20140515
